FAERS Safety Report 4975436-0 (Version None)
Quarter: 2006Q2

REPORT INFORMATION
  Report Type: 
  Country: None (occurrence: None)
  Receive Date: 20060418
  Receipt Date: 20060407
  Transmission Date: 20061013
  Serious: Yes (Other)
  Sender: FDA-Public Use
  Company Number: GB-SANOFI-SYNTHELABO-A01200602756

PATIENT
  Age: 53 Year
  Sex: Male
  Weight: 87 kg

DRUGS (1)
  1. XATRAL [Suspect]
     Indication: PSORIASIS
     Route: 048
     Dates: start: 20050905

REACTIONS (2)
  - PHOTODERMATOSIS [None]
  - SWELLING FACE [None]
